FAERS Safety Report 17926444 (Version 2)
Quarter: 2021Q2

REPORT INFORMATION
  Report Type: Spontaneous
  Country: US (occurrence: US)
  Receive Date: 20200622
  Receipt Date: 20210628
  Transmission Date: 20210717
  Serious: No
  Sender: FDA-Public Use
  Company Number: US-HORIZON-VIM-0113-2020

PATIENT
  Sex: Female

DRUGS (6)
  1. PHOSPHATASE [Concomitant]
  2. ZIFOL [Concomitant]
  3. MAGNESIUM [Concomitant]
     Active Substance: MAGNESIUM
  4. VIMOVO [Suspect]
     Active Substance: ESOMEPRAZOLE MAGNESIUM\NAPROXEN
     Indication: OSTEOARTHRITIS
     Dosage: ONCE A DAY
  5. CALCIUM [Concomitant]
     Active Substance: CALCIUM
  6. MISOPROSTOL. [Concomitant]
     Active Substance: MISOPROSTOL

REACTIONS (2)
  - Malaise [Unknown]
  - Intentional product use issue [Recovered/Resolved]
